FAERS Safety Report 6702452-0 (Version None)
Quarter: 2010Q2

REPORT INFORMATION
  Report Type: 
  Country: None (occurrence: None)
  Receive Date: 20100429
  Receipt Date: 20100420
  Transmission Date: 20101027
  Serious: Yes (Life-Threatening, Hospitalization)
  Sender: FDA-Public Use
  Company Number: B0639510A

PATIENT
  Sex: Male
  Weight: 66.7 kg

DRUGS (5)
  1. PAZOPANIB [Suspect]
     Indication: NEOPLASM
     Dosage: 400MG PER DAY
     Route: 048
     Dates: start: 20100215, end: 20100304
  2. IFOSFAMIDE [Suspect]
     Indication: NEOPLASM
     Dosage: 5000MG PER DAY
     Route: 042
     Dates: start: 20100222, end: 20100224
  3. THEOPHYLLINE [Concomitant]
     Indication: CHRONIC OBSTRUCTIVE PULMONARY DISEASE
     Dosage: 175MG TWICE PER DAY
     Route: 048
     Dates: start: 19980101
  4. TIOTROPIUM [Concomitant]
     Indication: CHRONIC OBSTRUCTIVE PULMONARY DISEASE
     Dosage: 1PUFF AS REQUIRED
     Route: 055
     Dates: start: 19980101
  5. SALMETEROL + FLUTICASONE [Concomitant]
     Indication: CHRONIC OBSTRUCTIVE PULMONARY DISEASE
     Dosage: 2PUFF TWICE PER DAY
     Route: 055
     Dates: start: 19980101

REACTIONS (8)
  - DRUG INTERACTION [None]
  - DYSPNOEA [None]
  - HYPOTENSION [None]
  - INFECTION [None]
  - NEUTROPENIA [None]
  - PNEUMONIA [None]
  - PULMONARY EMBOLISM [None]
  - PYREXIA [None]
